FAERS Safety Report 7583385-7 (Version None)
Quarter: 2011Q2

REPORT INFORMATION
  Report Type: 
  Country: None (occurrence: None)
  Receive Date: 20110628
  Receipt Date: 20110628
  Transmission Date: 20111010
  Serious: Yes (Hospitalization)
  Sender: FDA-Public Use
  Company Number: None

PATIENT
  Age: 68 Year
  Sex: Male

DRUGS (10)
  1. LORAZEPAM [Concomitant]
  2. PROAIR HFA [Concomitant]
  3. DECADRON [Concomitant]
  4. WARFARIN SODIUM [Concomitant]
  5. MORPHINE [Concomitant]
  6. REVLIMID [Suspect]
     Indication: MULTIPLE MYELOMA
     Dosage: 10MG QD 21D/28D ORALLY
     Route: 048
     Dates: start: 20060101, end: 20100101
  7. REVLIMID [Suspect]
     Indication: MULTIPLE MYELOMA
     Dosage: 10MG QD 21D/28D ORALLY
     Route: 048
     Dates: start: 20110201, end: 20110501
  8. REVLIMID [Concomitant]
  9. FUROSEMIDE [Concomitant]
  10. ALKERAN [Suspect]

REACTIONS (2)
  - SEPSIS [None]
  - PNEUMONIA [None]
